FAERS Safety Report 9305987 (Version 1)
Quarter: 2013Q2

REPORT INFORMATION
  Report Type: Report from Study
  Country: GB (occurrence: GB)
  Receive Date: 20130523
  Receipt Date: 20130523
  Transmission Date: 20140414
  Serious: Yes (Hospitalization)
  Sender: FDA-Public Use
  Company Number: PHHY2013GB050650

PATIENT
  Age: 66 Year
  Sex: Female
  Weight: 53 kg

DRUGS (17)
  1. OXALIPLATIN [Suspect]
     Indication: COLORECTAL CANCER METASTATIC
     Dates: start: 20121101
  2. OXALIPLATIN [Suspect]
     Dates: start: 20130313
  3. CALCIUM LEVOFOLINATE [Suspect]
     Indication: COLORECTAL CANCER METASTATIC
     Dosage: 610MG DAY 1 AND DAY 15
     Route: 042
     Dates: start: 20121101, end: 20130220
  4. CALCIUM LEVOFOLINATE [Suspect]
     Dosage: 610MG DAY 1 AND DAY 15
     Route: 042
     Dates: start: 20130313
  5. 5-FLUOROURACIL [Suspect]
     Indication: COLORECTAL CANCER METASTATIC
     Dosage: 400 MG DAY 1 AND 15
     Route: 040
     Dates: start: 20121101, end: 20130220
  6. 5-FLUOROURACIL [Suspect]
     Dosage: 2400 MG, UNK
     Route: 040
     Dates: start: 20121101
  7. TIVOZANIB [Suspect]
     Indication: COLORECTAL CANCER METASTATIC
     Dosage: 1.5MG  UID/QD FOR 21 DAYS OF 28 DAY
     Route: 048
     Dates: start: 20121101, end: 20121223
  8. TIVOZANIB [Suspect]
     Dosage: 1.0MG UID/QD FOR 21 DAYS OF 28 DAY
     Route: 048
     Dates: start: 20121224, end: 20130220
  9. TIVOZANIB [Suspect]
     Dosage: 1.0MG UID/QD FOR 21 DAYS OF 28 DAY
     Route: 048
     Dates: start: 20130313
  10. SALBUTAMOL [Concomitant]
     Dates: start: 1980
  11. SERETIDE [Concomitant]
     Dates: start: 1980
  12. TIOTROPIUM [Concomitant]
     Dates: start: 1980
  13. DILTIAZEM [Concomitant]
     Dates: start: 2008
  14. GABAPENTIN [Concomitant]
     Dates: start: 2008
  15. OMEPRAZOLE [Concomitant]
     Dates: start: 2009
  16. SIMVASTATIN [Concomitant]
     Dates: start: 2008
  17. THEOPHYLLIN [Concomitant]
     Dates: start: 1980

REACTIONS (5)
  - Febrile neutropenia [Recovered/Resolved]
  - Lower respiratory tract infection [Recovered/Resolved]
  - Productive cough [Recovered/Resolved]
  - Malaise [Recovered/Resolved]
  - Dyspnoea [Recovered/Resolved]
